FAERS Safety Report 8392523 (Version 3)
Quarter: 2015Q3

REPORT INFORMATION
  Report Type: Spontaneous
  Country: US (occurrence: US)
  Receive Date: 20120206
  Receipt Date: 20150909
  Transmission Date: 20151125
  Serious: Yes (Disabling, Other)
  Sender: FDA-Public Use
  Company Number: US-PFIZER INC-2012028685

PATIENT
  Age: 69 Year
  Sex: Female
  Weight: 69.84 kg

DRUGS (7)
  1. LYRICA [Suspect]
     Active Substance: PREGABALIN
     Indication: ARTHRITIS
     Dosage: 75 MG, 2X/DAY
     Route: 048
  2. LYRICA [Suspect]
     Active Substance: PREGABALIN
     Indication: FIBROMYALGIA
     Dosage: 75 MG, DAILY
     Route: 048
     Dates: start: 201201
  3. LYRICA [Suspect]
     Active Substance: PREGABALIN
     Dosage: 75 MG, 3X/DAY
     Route: 048
     Dates: start: 2012
  4. TYLENOL [Interacting]
     Active Substance: ACETAMINOPHEN
     Indication: PAIN
     Dosage: UNK AS NEEDED
  5. WARFARIN SODIUM. [Interacting]
     Active Substance: WARFARIN SODIUM
     Dosage: UNK
  6. GABAPENTIN. [Suspect]
     Active Substance: GABAPENTIN
     Indication: MYALGIA
     Dosage: UNK
     Route: 048
  7. GABAPENTIN. [Suspect]
     Active Substance: GABAPENTIN
     Indication: NEURALGIA
     Dosage: THREE TABLETS

REACTIONS (10)
  - Incorrect dose administered [Unknown]
  - Epistaxis [Unknown]
  - Pain [Not Recovered/Not Resolved]
  - Coagulation time prolonged [Unknown]
  - Activities of daily living impaired [Unknown]
  - Bedridden [Unknown]
  - Lethargy [Unknown]
  - Prothrombin time prolonged [Unknown]
  - Drug interaction [Unknown]
  - Drug ineffective [Unknown]

NARRATIVE: CASE EVENT DATE: 201201
